FAERS Safety Report 12599620 (Version 4)
Quarter: 2016Q3

REPORT INFORMATION
  Report Type: Report from Study
  Country: NL (occurrence: NL)
  Receive Date: 20160727
  Receipt Date: 20160824
  Transmission Date: 20161109
  Serious: Yes (Hospitalization)
  Sender: FDA-Public Use
  Company Number: NL-ABBVIE-16K-114-1686419-00

PATIENT
  Age: 67 Year
  Sex: Male

DRUGS (2)
  1. DUODOPA [Suspect]
     Active Substance: CARBIDOPA\LEVODOPA
     Dosage: MD: 6.0, CD: 5.0, ED: 4.0, CND: 4.0, END: 4.0
     Route: 050
  2. DUODOPA [Suspect]
     Active Substance: CARBIDOPA\LEVODOPA
     Indication: PARKINSON^S DISEASE
     Dosage: MORNING DOSE: 2.5, CONTINUOUS DOSE: 4.6, EXTRA DOSE: 2.5, NIGHT DOSE: 3.3
     Route: 050
     Dates: start: 20080317

REACTIONS (16)
  - Productive cough [Recovering/Resolving]
  - Pain [Recovering/Resolving]
  - Dyskinesia [Not Recovered/Not Resolved]
  - Coma [Recovered/Resolved]
  - Incorrect dose administered [Recovered/Resolved]
  - Stoma site discharge [Unknown]
  - Device dislocation [Unknown]
  - Device use error [Recovered/Resolved]
  - Dysphonia [Not Recovered/Not Resolved]
  - Drug ineffective [Unknown]
  - Parkinsonism [Not Recovered/Not Resolved]
  - Drug effect decreased [Not Recovered/Not Resolved]
  - Speech disorder [Not Recovered/Not Resolved]
  - Road traffic accident [Unknown]
  - Dysphagia [Recovering/Resolving]
  - General physical health deterioration [Not Recovered/Not Resolved]

NARRATIVE: CASE EVENT DATE: 2016
